FAERS Safety Report 11175007 (Version 1)
Quarter: 2015Q2

REPORT INFORMATION
  Report Type: Spontaneous
  Country: US (occurrence: None)
  Receive Date: 20150608
  Receipt Date: 20150608
  Transmission Date: 20150821
  Serious: Yes (Other)
  Sender: FDA-Public Use
  Company Number: None

PATIENT
  Age: 23 Year
  Sex: Female
  Weight: 70.31 kg

DRUGS (2)
  1. PHOSPHATIDYL CHOLINE [Suspect]
     Active Substance: LECITHIN
  2. LIPODISSOLVE [Suspect]
     Active Substance: UNSPECIFIED INGREDIENT

REACTIONS (2)
  - Skin mass [None]
  - Joint swelling [None]

NARRATIVE: CASE EVENT DATE: 20050818
